FAERS Safety Report 9610572 (Version 2)
Quarter: 2013Q4

REPORT INFORMATION
  Report Type: Report from Study
  Country: VE (occurrence: VE)
  Receive Date: 20131009
  Receipt Date: 20131017
  Transmission Date: 20140711
  Serious: Yes (Other)
  Sender: FDA-Public Use
  Company Number: VE-BAYER-2013-121201

PATIENT
  Age: 66 Year
  Sex: Female

DRUGS (1)
  1. BETAFERON [Suspect]
     Indication: MULTIPLE SCLEROSIS
     Dosage: UNK
     Dates: start: 2009

REACTIONS (3)
  - Dyspnoea [Recovering/Resolving]
  - Injection site dermatitis [Recovering/Resolving]
  - Fatigue [Recovering/Resolving]
